FAERS Safety Report 4431310-X (Version None)
Quarter: 2004Q3

REPORT INFORMATION
  Report Type: 
  Country: None (occurrence: None)
  Receive Date: 20040824
  Receipt Date: 20030929
  Transmission Date: 20050211
  Serious: Yes (Hospitalization)
  Sender: FDA-Public Use
  Company Number: US-MERCK-0310USA00443

PATIENT
  Age: 70 Year
  Sex: Female
  Weight: 77 kg

DRUGS (4)
  1. [THERAPY UNSPECIFIED] [Concomitant]
     Route: 065
  2. INSULIN [Concomitant]
     Route: 065
  3. VIOXX [Suspect]
     Indication: PAIN IN EXTREMITY
     Route: 048
     Dates: start: 20001120, end: 20001101
  4. VIOXX [Suspect]
     Route: 048
     Dates: start: 20001130, end: 20020101

REACTIONS (48)
  - ABDOMINAL DISCOMFORT [None]
  - ABDOMINAL PAIN LOWER [None]
  - ABDOMINAL PAIN UPPER [None]
  - ALOPECIA [None]
  - ARRHYTHMIA [None]
  - ATELECTASIS [None]
  - BLOOD PRESSURE INCREASED [None]
  - CARDIOMEGALY [None]
  - CHEST PAIN [None]
  - CHOLECYSTITIS [None]
  - CHOLELITHIASIS [None]
  - CHRONIC FATIGUE SYNDROME [None]
  - COMPUTERISED TOMOGRAM ABNORMAL [None]
  - DIARRHOEA [None]
  - DIVERTICULITIS [None]
  - DIZZINESS [None]
  - DRUG HYPERSENSITIVITY [None]
  - DYSPNOEA [None]
  - EMOTIONAL DISTRESS [None]
  - EMPYEMA [None]
  - GOUT [None]
  - HAEMATOCRIT DECREASED [None]
  - HAEMOGLOBIN DECREASED [None]
  - HEADACHE [None]
  - HERNIA [None]
  - HYPERTENSION [None]
  - INTERSTITIAL LUNG DISEASE [None]
  - ISCHAEMIA [None]
  - LARGE INTESTINAL ULCER HAEMORRHAGE [None]
  - LUNG INFILTRATION [None]
  - NAUSEA [None]
  - OEDEMA [None]
  - OESOPHAGEAL ULCER HAEMORRHAGE [None]
  - OSTEOARTHRITIS [None]
  - PLEURAL EFFUSION [None]
  - PLEURAL FIBROSIS [None]
  - PNEUMONIA [None]
  - POST PROCEDURAL COMPLICATION [None]
  - POSTNASAL DRIP [None]
  - PULMONARY CONGESTION [None]
  - PYREXIA [None]
  - RENAL CYST [None]
  - RHEUMATOID ARTHRITIS [None]
  - SCOLIOSIS [None]
  - SINUS CONGESTION [None]
  - SINUS PAIN [None]
  - VERTIGO [None]
  - WEIGHT DECREASED [None]
